FAERS Safety Report 6970134-6 (Version None)
Quarter: 2010Q3

REPORT INFORMATION
  Report Type: 
  Country: None (occurrence: None)
  Receive Date: 20100903
  Receipt Date: 20100827
  Transmission Date: 20110219
  Serious: Yes (Hospitalization, Disabling)
  Sender: FDA-Public Use
  Company Number: OSCN-NO-0903S-0139

PATIENT
  Age: 36 Year
  Sex: Male
  Weight: 60.6 kg

DRUGS (13)
  1. OMNISCAN [Suspect]
     Indication: RENAL TRANSPLANT
     Dosage: 30 ML, SINGLE DOSE, I.V.
     Route: 042
     Dates: start: 20020429, end: 20020429
  2. GADOLINIUM (UNSPECIFIED) [Suspect]
     Indication: RENAL TRANSPLANT
     Dates: start: 20010601, end: 20010601
  3. GADOLINIUM (UNSPECIFIED) [Suspect]
     Indication: RENAL TRANSPLANT
     Dates: start: 20041014, end: 20041014
  4. MEGLUMINE GADOTERATE (DOTAREM) [Concomitant]
  5. CALCIUM ACETATE [Concomitant]
  6. DIALYSIS VITAMINS [Concomitant]
  7. METOPROLOL TARTRATE [Concomitant]
  8. ACETYLSALICYLIC ACID [Concomitant]
  9. INSULIN [Concomitant]
  10. DILTIAZEM [Concomitant]
  11. LEVOTHYROXINE SODIUM [Concomitant]
  12. OMEPRAZOLE [Concomitant]
  13. SACCHARATED IRON OXIDE (VENOFER) [Concomitant]

REACTIONS (3)
  - ABASIA [None]
  - NEPHROGENIC SYSTEMIC FIBROSIS [None]
  - SCLERODERMA [None]
